FAERS Safety Report 6381397-2 (Version None)
Quarter: 2009Q3

REPORT INFORMATION
  Report Type: 
  Country: None (occurrence: None)
  Receive Date: 20090924
  Receipt Date: 20090910
  Transmission Date: 20100115
  Serious: Yes (Death, Hospitalization, Other)
  Sender: FDA-Public Use
  Company Number: CERZ-1000913

PATIENT
  Age: 23 Year
  Sex: Male
  Weight: 35 kg

DRUGS (1)
  1. CEREZYME [Suspect]
     Indication: GAUCHER'S DISEASE
     Dates: start: 20090814, end: 20090828

REACTIONS (8)
  - ABDOMINAL ADHESIONS [None]
  - DEHYDRATION [None]
  - DIARRHOEA [None]
  - INTESTINAL OBSTRUCTION [None]
  - KIDNEY INFECTION [None]
  - MALNUTRITION [None]
  - MULTI-ORGAN FAILURE [None]
  - NOSOCOMIAL INFECTION [None]
